FAERS Safety Report 13909779 (Version 1)
Quarter: 2017Q3

REPORT INFORMATION
  Report Type: Report from Study
  Country: US (occurrence: US)
  Receive Date: 20170828
  Receipt Date: 20170828
  Transmission Date: 20171127
  Serious: Yes (Hospitalization)
  Sender: FDA-Public Use
  Company Number: US-GILEAD-2017-0290478

PATIENT
  Age: 56 Year
  Sex: Female

DRUGS (12)
  1. AMBRISENTAN [Suspect]
     Active Substance: AMBRISENTAN
     Indication: PULMONARY ARTERIAL HYPERTENSION
     Dosage: 10 MG, QD
     Route: 048
     Dates: start: 201309
  2. DIGOXIN. [Concomitant]
     Active Substance: DIGOXIN
  3. LEVOTHYROXINE. [Concomitant]
     Active Substance: LEVOTHYROXINE
  4. OXYCODONE W/APAP [Concomitant]
     Active Substance: ACETAMINOPHEN\OXYCODONE HYDROCHLORIDE
  5. WARFARIN [Concomitant]
     Active Substance: WARFARIN
  6. TORSEMIDE. [Concomitant]
     Active Substance: TORSEMIDE
  7. SPIRONOLACTONE. [Concomitant]
     Active Substance: SPIRONOLACTONE
  8. SILDENAFIL. [Concomitant]
     Active Substance: SILDENAFIL
  9. VENTOLIN [Concomitant]
     Active Substance: ALBUTEROL SULFATE
  10. HYDROXYZINE [Concomitant]
     Active Substance: HYDROXYZINE HYDROCHLORIDE
  11. SENNA                              /00142201/ [Concomitant]
     Active Substance: SENNA LEAF
  12. TRAMADOL. [Concomitant]
     Active Substance: TRAMADOL

REACTIONS (4)
  - Pruritus generalised [Unknown]
  - Oedema [Unknown]
  - Rash [Unknown]
  - Peripheral swelling [Unknown]
